FAERS Safety Report 9400344 (Version 3)
Quarter: 2013Q3

REPORT INFORMATION
  Report Type: Spontaneous
  Country: US (occurrence: US)
  Receive Date: 20130715
  Receipt Date: 20130819
  Transmission Date: 20140515
  Serious: No
  Sender: FDA-Public Use
  Company Number: US-PFIZER INC-2013202873

PATIENT
  Age: 57 Year
  Sex: Female

DRUGS (2)
  1. CLINDAMYCIN HCL [Suspect]
     Dosage: UNK
     Dates: start: 2003, end: 2003
  2. AUGMENTIN [Suspect]
     Dosage: UNK
     Dates: start: 2003, end: 2003

REACTIONS (2)
  - Drug hypersensitivity [Unknown]
  - Rash [Recovered/Resolved]
